FAERS Safety Report 4404736-8 (Version None)
Quarter: 2004Q3

REPORT INFORMATION
  Report Type: 
  Country: None (occurrence: None)
  Receive Date: 20040722
  Receipt Date: 20040716
  Transmission Date: 20050211
  Serious: Yes (Death, Hospitalization)
  Sender: FDA-Public Use
  Company Number: FR-GLAXOSMITHKLINE-B0339818A

PATIENT
  Sex: Male

DRUGS (1)
  1. ZEFFIX [Suspect]
     Indication: HEPATITIS B
     Route: 048

REACTIONS (6)
  - ABNORMAL SENSATION IN EYE [None]
  - ASTHENIA [None]
  - DEATH [None]
  - DIFFICULTY IN WALKING [None]
  - FATIGUE [None]
  - SENSE OF OPPRESSION [None]
